FAERS Safety Report 19047438 (Version 1)
Quarter: 2021Q1

REPORT INFORMATION
  Report Type: Report from Study
  Country: US (occurrence: US)
  Receive Date: 20210323
  Receipt Date: 20210323
  Transmission Date: 20210420
  Serious: Yes (Other)
  Sender: FDA-Public Use
  Company Number: US-JNJFOC-20210327335

PATIENT
  Age: 19 Year
  Sex: Male

DRUGS (7)
  1. SPRAVATO [Suspect]
     Active Substance: ESKETAMINE
     Dosage: TOTAL DOSE 1
     Dates: start: 20201231, end: 20201231
  2. SPRAVATO [Suspect]
     Active Substance: ESKETAMINE
     Dosage: TOTAL DOSES 20
     Dates: start: 20190814, end: 20200117
  3. SPRAVATO [Suspect]
     Active Substance: ESKETAMINE
     Dosage: TOTAL DOSES 7
     Dates: start: 20210107, end: 20210312
  4. SPRAVATO [Suspect]
     Active Substance: ESKETAMINE
     Indication: DEPRESSION
     Dosage: TOTAL DOSES 3
     Dates: start: 20190805, end: 20190812
  5. SPRAVATO [Suspect]
     Active Substance: ESKETAMINE
     Dosage: TOTAL DOSES 2
     Dates: start: 20200623, end: 20200625
  6. SPRAVATO [Suspect]
     Active Substance: ESKETAMINE
     Dosage: TOTAL DOSES 21
     Dates: start: 20200630, end: 20201203
  7. SPRAVATO [Suspect]
     Active Substance: ESKETAMINE
     Dosage: TOTAL DOSES 3
     Dates: start: 20201210, end: 20201222

REACTIONS (3)
  - Dissociation [Recovered/Resolved]
  - Sedation [Recovered/Resolved]
  - Product dose omission in error [Recovered/Resolved]

NARRATIVE: CASE EVENT DATE: 20210312
